FAERS Safety Report 10363189 (Version 3)
Quarter: 2014Q3

REPORT INFORMATION
  Report Type: Report from Study
  Country: US (occurrence: US)
  Receive Date: 20140805
  Receipt Date: 20140913
  Transmission Date: 20150326
  Serious: Yes (Other)
  Sender: FDA-Public Use
  Company Number: US-SA-2014SA096204

PATIENT
  Age: 52 Year
  Sex: Female

DRUGS (3)
  1. AUBAGIO [Suspect]
     Active Substance: TERIFLUNOMIDE
     Indication: MULTIPLE SCLEROSIS
     Route: 048
     Dates: start: 20140704
  2. SYNTHROID [Concomitant]
     Active Substance: LEVOTHYROXINE SODIUM
  3. AUBAGIO [Suspect]
     Active Substance: TERIFLUNOMIDE
     Indication: MULTIPLE SCLEROSIS
     Route: 048
     Dates: start: 20140804

REACTIONS (18)
  - Cardiac arrest [Unknown]
  - Foot deformity [Unknown]
  - Malaise [Unknown]
  - Anaemia [Unknown]
  - Rotator cuff syndrome [Unknown]
  - Muscle spasms [Unknown]
  - Renal pain [Unknown]
  - Nausea [Unknown]
  - Pain [Unknown]
  - Swelling [Unknown]
  - Local anaesthesia [Unknown]
  - Pain of skin [Unknown]
  - Vertigo [Unknown]
  - Back pain [Unknown]
  - Hyperthermia malignant [Unknown]
  - Tooth extraction [Unknown]
  - Paraesthesia [Unknown]
  - Alopecia [Unknown]
